FAERS Safety Report 9958383 (Version 1)
Quarter: 2014Q1

REPORT INFORMATION
  Report Type: Spontaneous
  Country: FR (occurrence: FR)
  Receive Date: 20140305
  Receipt Date: 20140305
  Transmission Date: 20141002
  Serious: Yes (Other)
  Sender: FDA-Public Use
  Company Number: PHHY2014FR024226

PATIENT
  Age: 3 Year
  Sex: Male

DRUGS (5)
  1. CICLOSPORIN [Suspect]
     Indication: IMMUNOSUPPRESSANT DRUG THERAPY
  2. AZATHIOPRINE [Suspect]
     Indication: IMMUNOSUPPRESSANT DRUG THERAPY
  3. PREDNISONE [Suspect]
     Indication: IMMUNOSUPPRESSANT DRUG THERAPY
     Route: 048
  4. ANTITHYMOCYTE IMMUNOGLOBULIN [Suspect]
     Indication: IMMUNOSUPPRESSANT DRUG THERAPY
  5. METHYLPREDNISOLONE [Suspect]
     Indication: IMMUNOSUPPRESSANT DRUG THERAPY

REACTIONS (2)
  - Post transplant lymphoproliferative disorder [Unknown]
  - Kidney transplant rejection [Unknown]
